FAERS Safety Report 7339517-9 (Version None)
Quarter: 2011Q1

REPORT INFORMATION
  Report Type: 
  Country: None (occurrence: None)
  Receive Date: 20110308
  Receipt Date: 20110208
  Transmission Date: 20110831
  Serious: No
  Sender: FDA-Public Use
  Company Number: US-AMGEN-USASP2011003108

PATIENT
  Age: 88 Year
  Sex: Female
  Weight: 51.701 kg

DRUGS (1)
  1. PROLIA [Suspect]
     Indication: OSTEOPOROSIS POSTMENOPAUSAL
     Dates: start: 20101214

REACTIONS (4)
  - DIZZINESS [None]
  - ASTHENIA [None]
  - MUSCULAR WEAKNESS [None]
  - BACK PAIN [None]
